FAERS Safety Report 8198956-7 (Version None)
Quarter: 2012Q1

REPORT INFORMATION
  Report Type: 
  Country: None (occurrence: None)
  Receive Date: 20120309
  Receipt Date: 20120228
  Transmission Date: 20120608
  Serious: Yes (Hospitalization)
  Sender: FDA-Public Use
  Company Number: FR-EISAI INC-E3810-05347-SPO-FR

PATIENT
  Sex: Female

DRUGS (12)
  1. RABEPRAZOLE SODIUM [Suspect]
     Route: 048
     Dates: end: 20120107
  2. THALIDOMIDE [Suspect]
     Route: 048
     Dates: start: 20110617, end: 20120107
  3. ALLOPURINOL [Concomitant]
     Route: 048
  4. ASPEGIC 1000 [Suspect]
     Route: 048
     Dates: end: 20120107
  5. PERINDOPRIL ERBUMINE [Concomitant]
     Route: 048
  6. EUPRESSYL [Concomitant]
     Route: 048
  7. NICARDIPINE HYDROCHLORIDE [Suspect]
     Route: 048
     Dates: end: 20120107
  8. ZOLPIDEM [Concomitant]
     Route: 048
  9. POTASSIUM CHLORIDE [Suspect]
     Route: 048
     Dates: end: 20120107
  10. TRANSIPEG [Suspect]
     Route: 048
     Dates: end: 20120107
  11. SOTALOL HCL [Concomitant]
     Route: 048
  12. DEDROGYL [Suspect]
     Route: 048
     Dates: end: 20120107

REACTIONS (1)
  - DEEP VEIN THROMBOSIS [None]
